FAERS Safety Report 6664171-9 (Version None)
Quarter: 2010Q2

REPORT INFORMATION
  Report Type: 
  Country: None (occurrence: None)
  Receive Date: 20100401
  Receipt Date: 20100322
  Transmission Date: 20101027
  Serious: Yes (Death)
  Sender: FDA-Public Use
  Company Number: US-PFIZER INC-2010036788

PATIENT

DRUGS (1)
  1. CAMPTOSAR [Suspect]
     Dosage: UNK
     Route: 051

REACTIONS (1)
  - DEATH [None]
